FAERS Safety Report 24015792 (Version 1)
Quarter: 2024Q2

REPORT INFORMATION
  Report Type: Spontaneous
  Country: EG (occurrence: EG)
  Receive Date: 20240626
  Receipt Date: 20240626
  Transmission Date: 20240716
  Serious: Yes (Death)
  Sender: FDA-Public Use
  Company Number: EG-PFIZER INC-PV202400082596

PATIENT
  Age: 53 Year
  Sex: Male
  Weight: 57 kg

DRUGS (3)
  1. CARBOPLATIN [Suspect]
     Active Substance: CARBOPLATIN
     Indication: Lung neoplasm malignant
     Dosage: 611.3 MG, EVERY 3 WEEKS (DAY 1 EVERY 3 WEEKS)- DAY 1 4TH CYCLE
     Route: 042
     Dates: start: 20240520
  2. GEMCITABINE HYDROCHLORIDE [Suspect]
     Active Substance: GEMCITABINE HYDROCHLORIDE
     Indication: Lung neoplasm malignant
     Dosage: 1650 MG, CYCLIC (DAY 1,8 /EVERY 3 WEEKS)- DAY 8 4TH CYCLE
     Route: 042
     Dates: start: 20240527
  3. GEMCITABINE HYDROCHLORIDE [Suspect]
     Active Substance: GEMCITABINE HYDROCHLORIDE
     Dosage: 1650 MG, CYCLIC (DAY 1,8 /EVERY 3 WEEKS)- DAY 1 4TH CYCLE
     Route: 042
     Dates: start: 20240520

REACTIONS (2)
  - Gingival bleeding [Fatal]
  - Pancytopenia [Fatal]

NARRATIVE: CASE EVENT DATE: 20240603
